FAERS Safety Report 19318719 (Version 3)
Quarter: 2021Q4

REPORT INFORMATION
  Report Type: Report from Study
  Country: GB (occurrence: GB)
  Receive Date: 20210527
  Receipt Date: 20211110
  Transmission Date: 20220303
  Serious: Yes (Other)
  Sender: FDA-Public Use
  Company Number: GB-SAMSUNG BIOEPIS-SB-2021-01112

PATIENT
  Age: 75 Year
  Sex: Female

DRUGS (2)
  1. SULFASALAZINE [Suspect]
     Active Substance: SULFASALAZINE
     Dosage: UNKNOWN
     Route: 065
  2. ETANERCEPT [Suspect]
     Active Substance: ETANERCEPT
     Indication: Rheumatoid arthritis
     Route: 058
     Dates: start: 20201127

REACTIONS (6)
  - Rheumatoid arthritis [Unknown]
  - Sleep disorder [Unknown]
  - Tinnitus [Unknown]
  - Discomfort [Unknown]
  - Therapeutic product effect incomplete [Unknown]
  - Frustration tolerance decreased [Unknown]
